FAERS Safety Report 9710730 (Version 1)
Quarter: 2013Q4

REPORT INFORMATION
  Report Type: Spontaneous
  Country: US (occurrence: None)
  Receive Date: 20131125
  Receipt Date: 20131125
  Transmission Date: 20140711
  Serious: No
  Sender: FDA-Public Use
  Company Number: None

PATIENT
  Age: 83 None
  Sex: Male

DRUGS (14)
  1. EXELON PATCH [Suspect]
     Indication: DEMENTIA ALZHEIMER^S TYPE
     Dosage: 4.6 MG 1 PATCH ONCE DAILY ON THE SKIN
     Dates: start: 20130920, end: 20131103
  2. LATANAPROST [Concomitant]
  3. TIMOLOL [Concomitant]
  4. QUETIAPINE [Concomitant]
  5. LEVOTHYROXINE [Concomitant]
  6. AMLODIPINE [Concomitant]
  7. PANTOPRAZOLE [Concomitant]
  8. FLUOXETINE HCL [Concomitant]
  9. NAMENDA [Concomitant]
  10. SIMVASTATIN [Concomitant]
  11. VITAMIN C [Concomitant]
  12. VITAMIN E [Concomitant]
  13. SAW PALMETTO [Concomitant]
  14. FISH OIL [Concomitant]

REACTIONS (7)
  - Vomiting [None]
  - Nausea [None]
  - Decreased appetite [None]
  - Dizziness [None]
  - Somnolence [None]
  - Micturition urgency [None]
  - Respiratory disorder [None]
